FAERS Safety Report 4393156-0 (Version None)
Quarter: 2004Q3

REPORT INFORMATION
  Report Type: 
  Country: None (occurrence: None)
  Receive Date: 20040702
  Receipt Date: 20040624
  Transmission Date: 20050211
  Serious: Yes (Death)
  Sender: FDA-Public Use
  Company Number: 2004-06-1697

PATIENT
  Sex: Male

DRUGS (2)
  1. TEMODAL [Suspect]
     Dosage: ORAL
     Route: 048
  2. RADIATION THERAPY NO DOSE FORM [Suspect]
     Dosage: X-RAY THERAPY

REACTIONS (1)
  - LISTERIOSIS [None]
